FAERS Safety Report 7161234-9 (Version None)
Quarter: 2010Q4

REPORT INFORMATION
  Report Type: 
  Country: None (occurrence: None)
  Receive Date: 20101201
  Receipt Date: 20101125
  Transmission Date: 20110411
  Serious: Yes (Life-Threatening, Hospitalization)
  Sender: FDA-Public Use
  Company Number: 2010SP002640

PATIENT
  Age: 61 Year
  Sex: Female

DRUGS (11)
  1. NASONEX [Suspect]
     Indication: RHINITIS
     Dosage: 2 DF;BID;NAS
     Route: 045
     Dates: start: 20091108, end: 20091109
  2. CISPLATIN [Suspect]
     Indication: CHEMOTHERAPY
     Dosage: 21 MG;QD;IV, 21 MG;QD;IV, 17 MG;QD;IV, 17 MG;IV
     Route: 042
     Dates: start: 20091006, end: 20091010
  3. CISPLATIN [Suspect]
     Indication: CHEMOTHERAPY
     Dosage: 21 MG;QD;IV, 21 MG;QD;IV, 17 MG;QD;IV, 17 MG;IV
     Route: 042
     Dates: start: 20090709
  4. CISPLATIN [Suspect]
     Indication: CHEMOTHERAPY
     Dosage: 21 MG;QD;IV, 21 MG;QD;IV, 17 MG;QD;IV, 17 MG;IV
     Route: 042
     Dates: start: 20090730
  5. CISPLATIN [Suspect]
     Indication: CHEMOTHERAPY
     Dosage: 21 MG;QD;IV, 21 MG;QD;IV, 17 MG;QD;IV, 17 MG;IV
     Route: 042
     Dates: start: 20090907
  6. MITOMYCIN [Suspect]
     Indication: CHEMOTHERAPY
     Dosage: 14.5 MG;ONCE;IV, 14.5 MG;ONCE;IV, 11.5 MG;ONCE;IV, 11.5 MG;ONCE; IV
     Route: 042
     Dates: start: 20091006, end: 20091006
  7. MITOMYCIN [Suspect]
     Indication: CHEMOTHERAPY
     Dosage: 14.5 MG;ONCE;IV, 14.5 MG;ONCE;IV, 11.5 MG;ONCE;IV, 11.5 MG;ONCE; IV
     Route: 042
     Dates: start: 20090709
  8. MITOMYCIN [Suspect]
     Indication: CHEMOTHERAPY
     Dosage: 14.5 MG;ONCE;IV, 14.5 MG;ONCE;IV, 11.5 MG;ONCE;IV, 11.5 MG;ONCE; IV
     Route: 042
     Dates: start: 20090730
  9. MITOMYCIN [Suspect]
     Indication: CHEMOTHERAPY
     Dosage: 14.5 MG;ONCE;IV, 14.5 MG;ONCE;IV, 11.5 MG;ONCE;IV, 11.5 MG;ONCE; IV
     Route: 042
     Dates: start: 20090907
  10. DURAGESIC-100 [Concomitant]
  11. NEURONTIN [Concomitant]

REACTIONS (20)
  - ANAEMIA MACROCYTIC [None]
  - CHOLESTASIS [None]
  - CONVULSION [None]
  - HAEMATOTOXICITY [None]
  - HAPTOGLOBIN DECREASED [None]
  - HEADACHE [None]
  - HEMIPARESIS [None]
  - HYPERTENSION [None]
  - MALIGNANT HYPERTENSION [None]
  - PHONOPHOBIA [None]
  - PHOTOPHOBIA [None]
  - RED BLOOD CELL SCHISTOCYTES PRESENT [None]
  - RENAL FAILURE [None]
  - REVERSIBLE POSTERIOR LEUKOENCEPHALOPATHY SYNDROME [None]
  - SOMNOLENCE [None]
  - STATUS EPILEPTICUS [None]
  - VISION BLURRED [None]
  - VISUAL ACUITY REDUCED [None]
  - VOMITING [None]
  - WEIGHT DECREASED [None]
